FAERS Safety Report 13251654 (Version 1)
Quarter: 2017Q1

REPORT INFORMATION
  Report Type: Spontaneous
  Country: US (occurrence: US)
  Receive Date: 20170220
  Receipt Date: 20170220
  Transmission Date: 20170428
  Serious: No
  Sender: FDA-Public Use
  Company Number: US-TEVA-739395ACC

PATIENT
  Age: 63 Year
  Sex: Female

DRUGS (8)
  1. COPAXONE [Suspect]
     Active Substance: GLATIRAMER ACETATE
     Indication: MULTIPLE SCLEROSIS
     Dosage: 20 MILLIGRAM/MILLILITERS DAILY;
     Route: 058
     Dates: start: 20091103
  2. LUTEIN [Concomitant]
     Active Substance: LUTEIN
  3. BACLOFEN. [Concomitant]
     Active Substance: BACLOFEN
  4. METHOTREXATE. [Concomitant]
     Active Substance: METHOTREXATE
  5. SERTRALINE [Concomitant]
     Active Substance: SERTRALINE HYDROCHLORIDE
  6. AMANTADINE [Concomitant]
     Active Substance: AMANTADINE
  7. DIAZEPAM. [Concomitant]
     Active Substance: DIAZEPAM
  8. FOLIC ACID. [Concomitant]
     Active Substance: FOLIC ACID

REACTIONS (2)
  - Injection site reaction [Unknown]
  - Mobility decreased [Unknown]

NARRATIVE: CASE EVENT DATE: 201612
